FAERS Safety Report 8983056 (Version 2)
Quarter: 2013Q1

REPORT INFORMATION
  Report Type: Report from Study
  Country: US (occurrence: US)
  Receive Date: 20121223
  Receipt Date: 20130117
  Transmission Date: 20140127
  Serious: Yes (Hospitalization, Other)
  Sender: FDA-Public Use
  Company Number: US-JNJFOC-20121206328

PATIENT
  Sex: Female
  Weight: 59.88 kg

DRUGS (5)
  1. REMICADE [Suspect]
     Indication: COLITIS
     Route: 042
     Dates: start: 201208, end: 201209
  2. REMICADE [Suspect]
     Indication: PROCTITIS ULCERATIVE
     Route: 042
     Dates: start: 201208, end: 201209
  3. ARMOUR THYROID [Concomitant]
     Indication: HYPOTHYROIDISM
     Route: 048
     Dates: start: 2009
  4. UNKNOWN MEDICATION [Concomitant]
     Indication: FAECES HARD
     Route: 065
  5. PROBIOTIC [Concomitant]
     Indication: MEDICAL DIET

REACTIONS (8)
  - Intestinal operation [Unknown]
  - Colitis ulcerative [Recovered/Resolved]
  - Dehydration [Recovered/Resolved]
  - Hiatus hernia [Not Recovered/Not Resolved]
  - Hypertension [Not Recovered/Not Resolved]
  - Barium enema abnormal [Unknown]
  - Drug ineffective [Recovered/Resolved]
  - Weight decreased [Recovered/Resolved]
